FAERS Safety Report 10919308 (Version 6)
Quarter: 2017Q3

REPORT INFORMATION
  Report Type: Spontaneous
  Country: US (occurrence: US)
  Receive Date: 20150316
  Receipt Date: 20170810
  Transmission Date: 20171127
  Serious: Yes (Other)
  Sender: FDA-Public Use
  Company Number: US-PFIZER INC-2015089050

PATIENT
  Age: 19 Year
  Sex: Male
  Weight: 75 kg

DRUGS (4)
  1. BENEFIX [Suspect]
     Active Substance: COAGULATION FACTOR IX RECOMBINANT HUMAN\ISOPROPYL ALCOHOL
     Dosage: 7300 IU, DAILY, (7300 IU +/- 10% # OF DOSES: 4/ BENEFIX 7300 UNITS (+/-10%) = 100 UNITS/KG) [AT 73K]
  2. BENEFIX [Suspect]
     Active Substance: COAGULATION FACTOR IX RECOMBINANT HUMAN\ISOPROPYL ALCOHOL
     Dosage: 7200 IU,(+/- 10%) (ACTUAL) = 7250 (NOMINAL)  DAILY
  3. BENEFIX [Suspect]
     Active Substance: COAGULATION FACTOR IX RECOMBINANT HUMAN\ISOPROPYL ALCOHOL
     Dosage: 7300 IU (+/-10%) = 100 UNITS/KG DAILY ON DEMAND
  4. BENEFIX [Suspect]
     Active Substance: COAGULATION FACTOR IX RECOMBINANT HUMAN\ISOPROPYL ALCOHOL
     Indication: FACTOR IX DEFICIENCY
     Dosage: 7500 IU (+/- 10%), DAILY

REACTIONS (2)
  - Tooth disorder [Unknown]
  - Haemorrhage [Unknown]
